FAERS Safety Report 8485879-9 (Version None)
Quarter: 2012Q3

REPORT INFORMATION
  Report Type: 
  Country: None (occurrence: None)
  Receive Date: 20120703
  Receipt Date: 20120701
  Transmission Date: 20120928
  Serious: Yes (Death, Hospitalization, Other)
  Sender: FDA-Public Use
  Company Number: PHHY2012MX056466

PATIENT
  Sex: Male

DRUGS (3)
  1. SPIRIVA [Concomitant]
  2. ONBREZ [Suspect]
     Indication: LUNG NEOPLASM MALIGNANT
     Dosage: 150 UG, PER DAY
     Dates: start: 20120301, end: 20120613
  3. DABIGATRAN [Concomitant]

REACTIONS (1)
  - MYOCARDIAL INFARCTION [None]
